FAERS Safety Report 12389853 (Version 2)
Quarter: 2016Q3

REPORT INFORMATION
  Report Type: Spontaneous
  Country: DK (occurrence: IE)
  Receive Date: 20160520
  Receipt Date: 20160722
  Transmission Date: 20161109
  Serious: Yes (Death, Hospitalization, Other)
  Sender: FDA-Public Use
  Company Number: IE-FRI-1000071177

PATIENT
  Age: 63 Year
  Sex: Female

DRUGS (11)
  1. ESCITALOPRAM [Suspect]
     Active Substance: ESCITALOPRAM OXALATE
     Indication: DEPRESSION
     Route: 065
     Dates: start: 201402, end: 201407
  2. SERTRALINE (G) [Suspect]
     Active Substance: SERTRALINE HYDROCHLORIDE
     Indication: PRODUCT USED FOR UNKNOWN INDICATION
     Dosage: 50MG
     Route: 065
     Dates: start: 20140715, end: 20140717
  3. SERTRALINE (G) [Suspect]
     Active Substance: SERTRALINE HYDROCHLORIDE
     Dosage: 50MG
     Route: 065
     Dates: start: 20140903, end: 20140908
  4. ZISPIN [Suspect]
     Active Substance: MIRTAZAPINE
     Dosage: 30MG
     Route: 065
     Dates: start: 20140903
  5. SOLPADEINE SOLUBLE TABLETS, PARACETAMOL 500MG, COD 500/30/8 MILLIGRAM [Concomitant]
     Indication: PRODUCT USED FOR UNKNOWN INDICATION
     Route: 065
  6. ZISPIN [Suspect]
     Active Substance: MIRTAZAPINE
     Indication: PRODUCT USED FOR UNKNOWN INDICATION
     Dosage: 15 MG, UNK
     Route: 065
     Dates: start: 20140712, end: 20140902
  7. DIAZEPAM (G) [Concomitant]
     Indication: PRODUCT USED FOR UNKNOWN INDICATION
     Dosage: 5MG, REDUCING DOSE
     Route: 065
     Dates: start: 20140712, end: 20140818
  8. SERTRALINE (G) [Suspect]
     Active Substance: SERTRALINE HYDROCHLORIDE
     Dosage: 100 MG
     Route: 065
     Dates: end: 20140714
  9. DIAZEPAM (G) [Concomitant]
     Dosage: 2MG
     Route: 065
     Dates: start: 20140903
  10. TEMAZEPAM (G) [Concomitant]
     Indication: PRODUCT USED FOR UNKNOWN INDICATION
     Dosage: 20MG
     Route: 065
  11. SERTRALINE (G) [Suspect]
     Active Substance: SERTRALINE HYDROCHLORIDE
     Dosage: 100MG
     Route: 065
     Dates: start: 20140717, end: 20140902

REACTIONS (18)
  - Electrocardiogram abnormal [Unknown]
  - Fear of death [Unknown]
  - Contusion [Unknown]
  - Coagulopathy [Unknown]
  - Hepatic enzyme abnormal [Unknown]
  - Blood test abnormal [Unknown]
  - Withdrawal syndrome [Fatal]
  - Altered state of consciousness [Unknown]
  - Fall [Unknown]
  - Hyponatraemia [Unknown]
  - Fall [Unknown]
  - Completed suicide [Fatal]
  - Negative thoughts [Unknown]
  - Haemorrhage [Unknown]
  - Fear [Unknown]
  - Head injury [Unknown]
  - Electrocardiogram ST segment elevation [Unknown]
  - Panic reaction [Unknown]

NARRATIVE: CASE EVENT DATE: 20140829
